FAERS Safety Report 18312226 (Version 1)
Quarter: 2020Q3

REPORT INFORMATION
  Report Type: Spontaneous
  Country: US (occurrence: US)
  Receive Date: 20200925
  Receipt Date: 20200925
  Transmission Date: 20201103
  Serious: No
  Sender: FDA-Public Use
  Company Number: None

PATIENT
  Age: 69 Year
  Sex: Male

DRUGS (12)
  1. BENZONATATE. [Concomitant]
     Active Substance: BENZONATATE
  2. ZINC GLUCONATE [Concomitant]
     Active Substance: ZINC GLUCONATE
  3. CULURELLE [Concomitant]
  4. DEXAMETHASONE. [Concomitant]
     Active Substance: DEXAMETHASONE
  5. POTASSIUM BICARBONATE. [Concomitant]
     Active Substance: POTASSIUM BICARBONATE
  6. HYCODAN [Concomitant]
     Active Substance: HOMATROPINE METHYLBROMIDE\HYDROCODONE BITARTRATE
  7. THIAMINE. [Concomitant]
     Active Substance: THIAMINE
  8. SUBQ HEPARIN [Concomitant]
  9. IV AZITHROMYCIN [Concomitant]
  10. ASCORBIC ACID. [Concomitant]
     Active Substance: ASCORBIC ACID
  11. REMDESIVIR. [Suspect]
     Active Substance: REMDESIVIR
     Indication: COVID-19
     Dates: start: 20200906, end: 20200910
  12. CEFTRIAZONE [Concomitant]

REACTIONS (1)
  - Sinus bradycardia [None]
